FAERS Safety Report 8022157 (Version 2)
Quarter: 2019Q1

REPORT INFORMATION
  Report Type: Spontaneous
  Country: GB (occurrence: GB)
  Receive Date: 20110705
  Receipt Date: 20190212
  Transmission Date: 20190418
  Serious: Yes (Disabling)
  Sender: FDA-Public Use
  Company Number: GB-PFIZER INC-2011091394

PATIENT
  Age: 49 Year
  Sex: Female
  Weight: 56 kg

DRUGS (2)
  1. CINNARIZINE [Concomitant]
     Active Substance: CINNARIZINE
     Indication: LABYRINTHITIS
     Dosage: 30 MG, 2X/DAY
     Route: 048
     Dates: start: 2001
  2. CHAMPIX [Suspect]
     Active Substance: VARENICLINE TARTRATE
     Indication: SMOKING CESSATION THERAPY
     Dosage: 1 MG, 2X/DAY
     Route: 048
     Dates: start: 20101103, end: 20110115

REACTIONS (7)
  - Depressed mood [Unknown]
  - Anxiety [Not Recovered/Not Resolved]
  - Depression [Unknown]
  - Intentional self-injury [Unknown]
  - Insomnia [Unknown]
  - Anger [Not Recovered/Not Resolved]
  - Suicidal ideation [Not Recovered/Not Resolved]

NARRATIVE: CASE EVENT DATE: 201101
